FAERS Safety Report 13453781 (Version 1)
Quarter: 2017Q2

REPORT INFORMATION
  Report Type: Spontaneous
  Country: US (occurrence: US)
  Receive Date: 20170418
  Receipt Date: 20170418
  Transmission Date: 20170830
  Serious: No
  Sender: FDA-Public Use
  Company Number: US-ALLERGAN-1653116US

PATIENT
  Sex: Female
  Weight: 61.22 kg

DRUGS (1)
  1. LATISSE [Suspect]
     Active Substance: BIMATOPROST
     Indication: GROWTH OF EYELASHES
     Dosage: 2 GTT, QHS
     Route: 061
     Dates: start: 2014, end: 2015

REACTIONS (5)
  - Eyelid skin dryness [Recovered/Resolved]
  - Skin discolouration [Recovering/Resolving]
  - Eyelid exfoliation [Recovered/Resolved]
  - Eyelid disorder [Not Recovered/Not Resolved]
  - Drug ineffective [Unknown]

NARRATIVE: CASE EVENT DATE: 2014
